FAERS Safety Report 20028640 (Version 2)
Quarter: 2021Q4

REPORT INFORMATION
  Report Type: Other
  Country: AR (occurrence: AR)
  Receive Date: 20211103
  Receipt Date: 20211220
  Transmission Date: 20220303
  Serious: Yes (Death, Life-Threatening, Hospitalization, Other)
  Sender: FDA-Public Use
  Company Number: AR-002147023-PHHY2018AR032824

PATIENT
  Age: 60 Year
  Sex: Female

DRUGS (1)
  1. XOLAIR [Suspect]
     Active Substance: OMALIZUMAB
     Indication: Asthma
     Dosage: SOLUTION FOR INJECTION
     Route: 058
     Dates: start: 20170925

REACTIONS (12)
  - Intestinal perforation [Fatal]
  - Coma [Unknown]
  - Cardiac failure [Unknown]
  - COVID-19 [Unknown]
  - Pneumonia [Unknown]
  - Agitation [Unknown]
  - Overweight [Unknown]
  - Fatigue [Unknown]
  - Sensitivity to weather change [Recovering/Resolving]
  - Asthma [Not Recovered/Not Resolved]
  - Drug ineffective [Unknown]
  - Off label use [Unknown]

NARRATIVE: CASE EVENT DATE: 20170925
